FAERS Safety Report 8985790 (Version 7)
Quarter: 2015Q1

REPORT INFORMATION
  Report Type: Report from Study
  Country: US (occurrence: US)
  Receive Date: 20121226
  Receipt Date: 20150123
  Transmission Date: 20150721
  Serious: Yes (Other)
  Sender: FDA-Public Use
  Company Number: US-ACTELION-A-US2012-74832

PATIENT
  Age: 64 Year
  Sex: Female

DRUGS (9)
  1. VELETRI [Suspect]
     Active Substance: EPOPROSTENOL
     Dosage: 5 NG/KG, PER MIN
     Route: 042
     Dates: start: 20121107
  2. VELETRI [Suspect]
     Active Substance: EPOPROSTENOL
     Dosage: 31 NG/KG, PER MIN
     Route: 042
  3. VELETRI [Suspect]
     Active Substance: EPOPROSTENOL
     Dosage: 13 NG/KG, PER MIN
     Route: 042
     Dates: start: 20121031
  4. VELETRI [Suspect]
     Active Substance: EPOPROSTENOL
     Dosage: 10 UNK, UNK
     Route: 042
     Dates: start: 20121031
  5. VELETRI [Suspect]
     Active Substance: EPOPROSTENOL
     Dosage: 16 NG/KG, PER MIN
     Route: 042
     Dates: start: 20121031
  6. VELETRI [Suspect]
     Active Substance: EPOPROSTENOL
     Dosage: 20 NG/KG, UNK
     Route: 042
  7. ADCIRCA [Concomitant]
     Active Substance: TADALAFIL
  8. ZOFRAN [Concomitant]
     Active Substance: ONDANSETRON HYDROCHLORIDE
  9. VELETRI [Suspect]
     Active Substance: EPOPROSTENOL
     Indication: PULMONARY ARTERIAL HYPERTENSION
     Dosage: 18 NG/KG, PER MIN
     Route: 042

REACTIONS (16)
  - Weight decreased [Unknown]
  - Decreased appetite [Unknown]
  - Diarrhoea [Recovering/Resolving]
  - Peripheral coldness [Unknown]
  - Dysentery [Unknown]
  - Headache [Unknown]
  - Pain in jaw [Unknown]
  - Malaise [Unknown]
  - Vomiting [Unknown]
  - Flushing [Unknown]
  - Pain in extremity [Unknown]
  - Seasonal allergy [Unknown]
  - Pyrexia [Unknown]
  - Influenza like illness [Unknown]
  - Irritability [Unknown]
  - Nausea [Unknown]

NARRATIVE: CASE EVENT DATE: 20121114
